FAERS Safety Report 12485471 (Version 1)
Quarter: 2016Q2

REPORT INFORMATION
  Report Type: Spontaneous
  Country: US (occurrence: US)
  Receive Date: 20160621
  Receipt Date: 20160621
  Transmission Date: 20160815
  Serious: No
  Sender: FDA-Public Use
  Company Number: US-SA-2016SA000792

PATIENT
  Sex: Female

DRUGS (3)
  1. ELELYSO [Concomitant]
     Active Substance: TALIGLUCERASE ALFA
     Dates: start: 2014, end: 2015
  2. CEREZYME [Suspect]
     Active Substance: IMIGLUCERASE
     Route: 041
  3. CERDELGA [Concomitant]
     Active Substance: ELIGLUSTAT

REACTIONS (2)
  - Hypoaesthesia oral [Unknown]
  - Ill-defined disorder [Unknown]
